FAERS Safety Report 12537446 (Version 1)
Quarter: 2016Q3

REPORT INFORMATION
  Report Type: Spontaneous
  Country: US (occurrence: US)
  Receive Date: 20160707
  Receipt Date: 20160707
  Transmission Date: 20161109
  Serious: No
  Sender: FDA-Public Use
  Company Number: US-BAYER-2016-132684

PATIENT
  Age: 77 Year
  Sex: Female
  Weight: 58.95 kg

DRUGS (5)
  1. CALCIUM WITH VITAMIN D [Concomitant]
     Active Substance: CALCIUM\VITAMIN D
  2. LISINOPRIL. [Concomitant]
     Active Substance: LISINOPRIL
  3. PREDNISONE. [Concomitant]
     Active Substance: PREDNISONE
  4. LEVOTHYROXINE. [Concomitant]
     Active Substance: LEVOTHYROXINE
  5. MIRALAX [Suspect]
     Active Substance: POLYETHYLENE GLYCOL 3350
     Indication: BOWEL MOVEMENT IRREGULARITY
     Dosage: 1 DF, BID
     Route: 048

REACTIONS (2)
  - Circumstance or information capable of leading to medication error [None]
  - Product use issue [None]

NARRATIVE: CASE EVENT DATE: 20160701
